FAERS Safety Report 22036031 (Version 1)
Quarter: 2023Q1

REPORT INFORMATION
  Report Type: Report from Study
  Country: IT (occurrence: IT)
  Receive Date: 20230224
  Receipt Date: 20230224
  Transmission Date: 20230418
  Serious: Yes (Death, Hospitalization)
  Sender: FDA-Public Use
  Company Number: IT-002147023-NVSC2022IT296696

PATIENT

DRUGS (5)
  1. RUXOLITINIB [Suspect]
     Active Substance: RUXOLITINIB
     Indication: Myelofibrosis
     Dosage: TOTAL DAILY DOSE:20
     Route: 065
     Dates: start: 20211222, end: 20220308
  2. RUXOLITINIB [Suspect]
     Active Substance: RUXOLITINIB
     Dosage: TOTAL DAILY DOSE:10
     Route: 065
     Dates: start: 20220309
  3. RUXOLITINIB [Suspect]
     Active Substance: RUXOLITINIB
     Dosage: 5 MG, BID
     Route: 048
     Dates: start: 20220309
  4. TICAGRELOR [Concomitant]
     Active Substance: TICAGRELOR
     Indication: Antiplatelet therapy
     Dosage: 90 MG, QD
     Route: 065
     Dates: start: 202108
  5. ASPIRIN [Concomitant]
     Active Substance: ASPIRIN
     Indication: Antiplatelet therapy
     Dosage: 100 MG, QD
     Route: 065
     Dates: start: 20210611

REACTIONS (5)
  - Ecchymosis [Unknown]
  - Subcutaneous haematoma [Recovered/Resolved]
  - Platelet count decreased [Unknown]
  - Myelofibrosis [Fatal]
  - Malignant neoplasm progression [Fatal]

NARRATIVE: CASE EVENT DATE: 20220309
